FAERS Safety Report 22355203 (Version 1)
Quarter: 2023Q2

REPORT INFORMATION
  Report Type: Spontaneous
  Country: US (occurrence: US)
  Receive Date: 20230523
  Receipt Date: 20230523
  Transmission Date: 20230721
  Serious: No
  Sender: FDA-Public Use
  Company Number: US-GLENMARK PHARMACEUTICALS-2023GMK077531

PATIENT

DRUGS (3)
  1. CLOBETASOL PROPIONATE [Suspect]
     Active Substance: CLOBETASOL PROPIONATE
     Indication: Folliculitis
     Dosage: UNK, BID
     Route: 061
  2. ZENATANE [Concomitant]
     Active Substance: ISOTRETINOIN
     Indication: Folliculitis
     Dosage: UNK
     Route: 048
  3. ACCUTANE [Concomitant]
     Active Substance: ISOTRETINOIN
     Indication: Folliculitis
     Dosage: UNK
     Route: 048

REACTIONS (4)
  - Acne [Unknown]
  - Product use issue [Unknown]
  - Product dose omission issue [Unknown]
  - Drug ineffective [Unknown]

NARRATIVE: CASE EVENT DATE: 20200101
